FAERS Safety Report 23000338 (Version 8)
Quarter: 2024Q2

REPORT INFORMATION
  Report Type: Spontaneous
  Country: US (occurrence: US)
  Receive Date: 20230928
  Receipt Date: 20240425
  Transmission Date: 20240715
  Serious: No
  Sender: FDA-Public Use
  Company Number: US-BRISTOL-MYERS SQUIBB COMPANY-2023-137545

PATIENT
  Age: 86 Year
  Sex: Female

DRUGS (3)
  1. REVLIMID [Suspect]
     Active Substance: LENALIDOMIDE
     Indication: Plasma cell myeloma
     Route: 048
     Dates: start: 20220901
  2. REVLIMID [Suspect]
     Active Substance: LENALIDOMIDE
     Dosage: FREQUENCY: QD FOR 21 DAYS
     Route: 048
  3. REVLIMID [Suspect]
     Active Substance: LENALIDOMIDE
     Route: 048

REACTIONS (11)
  - Diarrhoea [Unknown]
  - Asthenia [Unknown]
  - Oedema peripheral [Unknown]
  - Joint swelling [Unknown]
  - Intentional dose omission [Unknown]
  - Pain in jaw [Recovered/Resolved]
  - Abdominal discomfort [Unknown]
  - Peripheral coldness [Unknown]
  - Bladder disorder [Unknown]
  - Micturition urgency [Unknown]
  - Arthritis [Unknown]
